FAERS Safety Report 6063163-0 (Version None)
Quarter: 2009Q1

REPORT INFORMATION
  Report Type: 
  Country: None (occurrence: None)
  Receive Date: 20090203
  Receipt Date: 20090121
  Transmission Date: 20090719
  Serious: Yes (Hospitalization, Other)
  Sender: FDA-Public Use
  Company Number: FR-PFIZER INC-2009163280

PATIENT

DRUGS (14)
  1. AMLOD [Suspect]
     Dosage: 5 MG, 1X/DAY
     Route: 048
     Dates: end: 20080101
  2. ATENOLOL [Suspect]
     Dosage: UNK
     Route: 048
     Dates: end: 20080101
  3. VASTEN [Suspect]
     Dosage: 40 MG, 1X/DAY
     Route: 048
     Dates: end: 20080806
  4. CORDARONE [Suspect]
     Dosage: 100 MG, 1X/DAY
     Route: 048
     Dates: end: 20080101
  5. ROCEPHIN [Suspect]
     Dosage: 2 G, 1X/DAY
     Route: 042
     Dates: start: 20080716, end: 20080805
  6. OFLOCET [Suspect]
     Dosage: 200 MG, 1X/DAY
     Route: 048
     Dates: start: 20080722, end: 20080805
  7. CELLCEPT [Suspect]
     Dosage: 500 MG, 2X/DAY
     Route: 048
     Dates: end: 20080808
  8. NEORAL [Concomitant]
     Dosage: 40 MG, 2X/DAY
     Route: 048
  9. LASILIX [Concomitant]
     Dosage: UNK
     Dates: end: 20080101
  10. SPECIAFOLDINE [Concomitant]
     Dosage: 2 DF, 1X/DAY
     Route: 048
     Dates: end: 20080101
  11. FLAGYL [Concomitant]
     Dosage: UNK
     Dates: start: 20080716, end: 20080805
  12. ARANESP [Concomitant]
     Dosage: 30 MG, WEEKLY
     Dates: end: 20080101
  13. PREVISCAN [Concomitant]
     Dosage: UNK
     Dates: end: 20080101
  14. CALCIPARINE ^DIFREX^ [Concomitant]
     Dosage: 0.3 ML, 2X/DAY

REACTIONS (4)
  - MUSCULAR WEAKNESS [None]
  - QUADRIPARESIS [None]
  - RENAL FAILURE [None]
  - RHABDOMYOLYSIS [None]
